FAERS Safety Report 5614338-3 (Version None)
Quarter: 2008Q1

REPORT INFORMATION
  Report Type: 
  Country: None (occurrence: None)
  Receive Date: 20080205
  Receipt Date: 20080128
  Transmission Date: 20080703
  Serious: Yes (Other)
  Sender: FDA-Public Use
  Company Number: US-PFIZER INC-2008008917

PATIENT
  Sex: Female
  Weight: 61.2 kg

DRUGS (3)
  1. XALATAN [Suspect]
  2. LUMIGAN [Suspect]
  3. ALL OTHER THERAPEUTIC PRODUCTS [Concomitant]

REACTIONS (3)
  - OCULAR HYPERAEMIA [None]
  - OPTIC NERVE DISORDER [None]
  - OVERDOSE [None]
